FAERS Safety Report 14546844 (Version 19)
Quarter: 2025Q1

REPORT INFORMATION
  Report Type: Spontaneous
  Country: US (occurrence: US)
  Receive Date: 20180219
  Receipt Date: 20250116
  Transmission Date: 20250409
  Serious: Yes (Hospitalization, Other)
  Sender: PFIZER
  Company Number: US-PFIZER INC-2018065235

PATIENT
  Age: 73 Year
  Sex: Female
  Weight: 77 kg

DRUGS (19)
  1. PROCARDIA XL [Suspect]
     Active Substance: NIFEDIPINE
     Indication: Cardiac disorder
     Dosage: 30 MG, 1X/DAY
     Route: 048
     Dates: end: 202312
  2. PROCARDIA XL [Suspect]
     Active Substance: NIFEDIPINE
     Indication: Cerebrovascular accident prophylaxis
  3. PROCARDIA XL [Suspect]
     Active Substance: NIFEDIPINE
     Indication: Hypertension
  4. ATENOLOL [Concomitant]
     Active Substance: ATENOLOL
     Indication: Blood pressure abnormal
     Dosage: TAKE 1 TABLET (50 MG) BY MOUTH 2 TIMES DAILY
     Route: 048
  5. ATENOLOL [Concomitant]
     Active Substance: ATENOLOL
     Indication: Atrial fibrillation
  6. LOSARTAN [Concomitant]
     Active Substance: LOSARTAN
     Indication: Blood pressure abnormal
     Dosage: UNK, 1X/DAY (100-25MG TABLET ONCE DAILY)
     Route: 048
     Dates: start: 2014
  7. LISINOPRIL [Concomitant]
     Active Substance: LISINOPRIL
     Indication: Blood pressure abnormal
     Dosage: TAKE 1 TABLET BY MOUTH EVERY DAY
     Route: 048
  8. LISINOPRIL [Concomitant]
     Active Substance: LISINOPRIL
     Indication: Type 2 diabetes mellitus
  9. ALBUTEROL SULFATE [Concomitant]
     Active Substance: ALBUTEROL SULFATE
     Route: 045
  10. NORVASC [Concomitant]
     Active Substance: AMLODIPINE BESYLATE
     Dosage: TAKE 1 TABLET (5 MG) BY MOUTH DAILY
     Route: 048
  11. LIPITOR [Concomitant]
     Active Substance: ATORVASTATIN CALCIUM
     Dosage: TAKE 1 TABLET (10 MG) BY MOUTH NIGHTLY
     Route: 048
  12. CHOLECALCIFEROL [Concomitant]
     Active Substance: CHOLECALCIFEROL
     Dosage: TAKE 1 TABLET BY MOUTH EVERY 7 DAYS
     Route: 048
  13. COLCHICINE [Concomitant]
     Active Substance: COLCHICINE
     Dosage: TAKE 1 TABLET (0.6 MG) BY MOUTH DAILY
     Route: 048
  14. VITAMIN B12 [Concomitant]
     Active Substance: CYANOCOBALAMIN
     Dosage: TAKE 1 TABLET (1,000 MCG) BY MOUTH DAILY
     Route: 048
  15. FEBUXOSTAT [Concomitant]
     Active Substance: FEBUXOSTAT
     Dosage: TAKE 1 TABLET BY MOUTH EVERY DAY
     Route: 048
  16. FERROUS SULFATE [Concomitant]
     Active Substance: FERROUS SULFATE
     Dosage: TAKE 1 TABLET (325 MG) BY MOUTH DAILY
     Route: 048
  17. SINGULAIR [Concomitant]
     Active Substance: MONTELUKAST SODIUM
     Dosage: TAKE 1 TABLET BY MOUTH EVERY DAY NIGHTLY
     Route: 048
  18. METFORMIN [Concomitant]
     Active Substance: METFORMIN HYDROCHLORIDE
     Dosage: 500 MG P.O. (PER ORAL) TWICE DAILY
     Route: 048
  19. CATAPRES [Concomitant]
     Active Substance: CLONIDINE HYDROCHLORIDE
     Dosage: 0.1 MG TABLET: BY MOUTH 2 TIMES DAILY
     Route: 048

REACTIONS (30)
  - Rash [Recovering/Resolving]
  - Skin fissures [Recovering/Resolving]
  - Diabetes mellitus [Unknown]
  - Chronic kidney disease [Unknown]
  - Renal failure [Unknown]
  - Circumstance or information capable of leading to medication error [Unknown]
  - Intentional product misuse [Unknown]
  - Anxiety [Unknown]
  - Asthenia [Unknown]
  - Chest pain [Not Recovered/Not Resolved]
  - Confusional state [Unknown]
  - Depression [Unknown]
  - Gout [Recovering/Resolving]
  - Emotional disorder [Unknown]
  - Memory impairment [Unknown]
  - Nervousness [Unknown]
  - Illness [Unknown]
  - Dyspnoea [Unknown]
  - Vitamin D deficiency [Unknown]
  - Dizziness [Unknown]
  - Chronic obstructive pulmonary disease [Unknown]
  - Arthralgia [Unknown]
  - Pain in extremity [Unknown]
  - Palpitations [Unknown]
  - Oropharyngeal pain [Unknown]
  - Rhinorrhoea [Unknown]
  - Cough [Unknown]
  - Headache [Unknown]
  - Abdominal discomfort [Unknown]
  - Back pain [Recovering/Resolving]

NARRATIVE: CASE EVENT DATE: 20180206
